FAERS Safety Report 8248556 (Version 7)
Quarter: 2012Q4

REPORT INFORMATION
  Report Type: Report from Study
  Country: DE (occurrence: DE)
  Receive Date: 20111117
  Receipt Date: 20121005
  Transmission Date: 20130627
  Serious: Yes (Life-Threatening, Hospitalization, Other)
  Sender: FDA-Public Use
  Company Number: DE-ROCHE-1013032

PATIENT
  Age: 48 Year
  Sex: Male
  Weight: 67 kg

DRUGS (7)
  1. VALCYTE [Suspect]
     Indication: CYTOMEGALOVIRUS INFECTION
     Dosage: last dose prior to event 25 Sep 2011
     Route: 048
     Dates: start: 20110913
  2. PANTOPRAZOL [Concomitant]
     Indication: PROPHYLAXIS AGAINST GASTROINTESTINAL ULCER
     Route: 048
     Dates: start: 20110808
  3. AMLODIPIN [Concomitant]
     Route: 048
     Dates: start: 20110913
  4. AMPHOTERICIN B [Concomitant]
     Indication: PROPHYLAXIS
     Dosage: 4 applications
     Route: 048
     Dates: start: 20110901
  5. AMOCLAV (UNITED STATES) [Concomitant]
     Route: 065
     Dates: start: 20110909, end: 20111121
  6. AMOCLAV (UNITED STATES) [Concomitant]
     Route: 065
     Dates: start: 20111024, end: 20111123
  7. ACETYLSALICYLIC ACID [Concomitant]
     Route: 048
     Dates: start: 20111126

REACTIONS (6)
  - Respiratory failure [Recovered/Resolved]
  - Pulmonary sepsis [Recovered/Resolved]
  - Myocardial infarction [Recovered/Resolved]
  - Respiratory tract infection [Recovered/Resolved]
  - Acute hepatic failure [Recovered/Resolved]
  - Renal failure acute [Recovered/Resolved]
